FAERS Safety Report 7237606-0 (Version None)
Quarter: 2011Q1

REPORT INFORMATION
  Report Type: 
  Country: None (occurrence: None)
  Receive Date: 20110121
  Receipt Date: 20110110
  Transmission Date: 20110831
  Serious: Yes (Hospitalization, Other)
  Sender: FDA-Public Use
  Company Number: DE-CELGENEUS-062-50794-10122915

PATIENT
  Age: 75 Year
  Sex: Male
  Weight: 96 kg

DRUGS (6)
  1. VIDAZA [Suspect]
     Route: 058
     Dates: start: 20101122, end: 20101129
  2. VIDAZA [Suspect]
     Route: 058
     Dates: start: 20101220, end: 20101226
  3. ASA [Concomitant]
     Route: 065
  4. SIMVAHEXAL [Concomitant]
     Route: 065
  5. BISOPROLOL [Concomitant]
     Route: 065
  6. RAMIPRIL [Concomitant]
     Route: 065

REACTIONS (2)
  - ANAL ULCER [None]
  - TONGUE NECROSIS [None]
